FAERS Safety Report 8301969-5 (Version None)
Quarter: 2012Q2

REPORT INFORMATION
  Report Type: 
  Country: None (occurrence: None)
  Receive Date: 20120420
  Receipt Date: 20120321
  Transmission Date: 20120825
  Serious: Yes (Death)
  Sender: FDA-Public Use
  Company Number: US-ROCHE-624227

PATIENT
  Sex: Female
  Weight: 71 kg

DRUGS (15)
  1. DOCETAXEL [Suspect]
     Indication: BREAST CANCER
     Dosage: FORM: VIALS; DOSE LEVEL : 75 MG/M2 PERMANENTLY DISCONTINUED
     Route: 042
     Dates: start: 20090317, end: 20090327
  2. ADVAIR DISKUS 100/50 [Concomitant]
  3. HERCEPTIN [Suspect]
     Indication: BREAST CANCER
     Dosage: FORM: VIALS;DOSE LEVEL : 8MG/KG, PERMANENTLY DISCONTINUED
     Route: 042
     Dates: start: 20090317, end: 20090327
  4. IMITREX [Concomitant]
  5. ZANTAC [Concomitant]
  6. ALLEGRA [Concomitant]
  7. DONNATAL [Concomitant]
  8. RETIN-A [Concomitant]
  9. CARBOPLATIN [Suspect]
     Indication: BREAST CANCER
     Dosage: DOSAGE REPORTED AS 6 AUC AND FORM: VIALS, PERMANENTLY DISCONTINUED
     Route: 042
     Dates: start: 20090317, end: 20090327
  10. FIORICET [Concomitant]
  11. AVASTIN [Suspect]
     Indication: BREAST CANCER
     Dosage: FORM: VIALS, DOSE LEVEL :15 MG/KG
     Route: 042
     Dates: start: 20090317, end: 20090327
  12. CLINDAMYCIN [Concomitant]
  13. INDERAL [Concomitant]
  14. ELAVIL [Concomitant]
  15. TYLENOL (CAPLET) [Concomitant]

REACTIONS (2)
  - NEUTROPENIC SEPSIS [None]
  - CARDIO-RESPIRATORY ARREST [None]
